FAERS Safety Report 5096490-4 (Version None)
Quarter: 2006Q3

REPORT INFORMATION
  Report Type: 
  Country: None (occurrence: None)
  Receive Date: 20060830
  Receipt Date: 20060817
  Transmission Date: 20061208
  Serious: Yes (Other)
  Sender: FDA-Public Use
  Company Number: 2006BL004954

PATIENT
  Age: 36 Year
  Sex: Male

DRUGS (3)
  1. DEXAMETHASONE [Suspect]
     Indication: TESTIS CANCER
     Dosage: 8 MILLIGRAMS DAILY ORAL ; 4 MILLIGRAMS DAILY ORAL
     Route: 048
  2. ETOPOSIDE [Suspect]
     Indication: TESTIS CANCER
     Dosage: 165 MILLIGRAMS PER SQUARE METER
  3. CISPLATIN [Suspect]
     Indication: TESTIS CANCER
     Dosage: 40 MILLIGRAMS PER SQUARE METER

REACTIONS (4)
  - GAIT DISTURBANCE [None]
  - GROIN PAIN [None]
  - OSTEONECROSIS [None]
  - THERAPY NON-RESPONDER [None]
